FAERS Safety Report 4836972-0 (Version None)
Quarter: 2005Q4

REPORT INFORMATION
  Report Type: 
  Country: None (occurrence: None)
  Receive Date: 20051121
  Receipt Date: 20051109
  Transmission Date: 20060501
  Serious: Yes (Other)
  Sender: FDA-Public Use
  Company Number: GXKR2005ES01951

PATIENT
  Age: 32 Year
  Sex: Female
  Weight: 50 kg

DRUGS (4)
  1. ALPRAZOLAM [Suspect]
     Indication: BIPOLAR DISORDER
     Dosage: 2.5 MG,
     Dates: start: 20011207, end: 20020707
  2. SERTRALINE (NGX) (SERTRALINE) [Suspect]
     Indication: BIPOLAR DISORDER
     Dosage: 25 00 MG
     Dates: start: 20011207, end: 20020215
  3. CLORAZEPATE (CLORAZEPATE DIPOTASSIUM) [Suspect]
     Indication: BIPOLAR DISORDER
     Dosage: 15 MG
     Dates: start: 20011207, end: 20020707
  4. AQUILEA (ELEUTHEROCOCCUS SENTICOSUS, RUSSIAN GINSENG) [Concomitant]

REACTIONS (4)
  - DIARRHOEA [None]
  - DRUG INTERACTION [None]
  - HEPATIC FIBROSIS [None]
  - HEPATITIS [None]
